FAERS Safety Report 8365979-4 (Version None)
Quarter: 2012Q2

REPORT INFORMATION
  Report Type: 
  Country: None (occurrence: None)
  Receive Date: 20120517
  Receipt Date: 20120511
  Transmission Date: 20120825
  Serious: No
  Sender: FDA-Public Use
  Company Number: US-PFIZER INC-2012116867

PATIENT
  Sex: Male
  Weight: 36 kg

DRUGS (2)
  1. MULTI-VITAMINS [Concomitant]
  2. GENOTROPIN [Suspect]
     Dosage: 1.4MG EVERY DAY
     Route: 058

REACTIONS (1)
  - HEADACHE [None]
